FAERS Safety Report 8030371-9 (Version None)
Quarter: 2012Q1

REPORT INFORMATION
  Report Type: 
  Country: None (occurrence: None)
  Receive Date: 20120109
  Receipt Date: 20120109
  Transmission Date: 20120608
  Serious: Yes (Hospitalization)
  Sender: FDA-Public Use
  Company Number: None

PATIENT
  Sex: Male
  Weight: 81.6 kg

DRUGS (1)
  1. DABIGATRAN [Suspect]
     Indication: ATRIAL FIBRILLATION
     Dosage: 75MG
     Route: 048

REACTIONS (5)
  - DYSPEPSIA [None]
  - RALES [None]
  - MIDDLE INSOMNIA [None]
  - OCCULT BLOOD POSITIVE [None]
  - HAEMOPTYSIS [None]
